FAERS Safety Report 10010060 (Version 2)
Quarter: 2014Q1

REPORT INFORMATION
  Report Type: Spontaneous
  Country: US (occurrence: US)
  Receive Date: 20140312
  Receipt Date: 20140312
  Transmission Date: 20141002
  Serious: No
  Sender: FDA-Public Use
  Company Number: US-INCYTE CORPORATION-2013IN000752

PATIENT
  Age: 60 Year
  Sex: Male
  Weight: 95.39 kg

DRUGS (4)
  1. JAKAFI [Suspect]
     Indication: MYELOFIBROSIS
     Dosage: 20 MG, BID
     Route: 048
     Dates: start: 20120715, end: 20130407
  2. JAKAFI [Suspect]
     Dosage: 20 MG, BID
     Route: 048
     Dates: start: 20130417
  3. ASPIRIN [Concomitant]
  4. CELEXA [Concomitant]

REACTIONS (2)
  - Splenomegaly [Unknown]
  - Fatigue [Unknown]
